FAERS Safety Report 21901919 (Version 1)
Quarter: 2023Q1

REPORT INFORMATION
  Report Type: Spontaneous
  Country: US (occurrence: US)
  Receive Date: 20230124
  Receipt Date: 20230124
  Transmission Date: 20230417
  Serious: No
  Sender: FDA-Public Use
  Company Number: US-PADAGIS-2023PAD00027

PATIENT

DRUGS (1)
  1. TESTOSTERONE CYPIONATE [Suspect]
     Active Substance: TESTOSTERONE CYPIONATE
     Indication: Blood testosterone decreased
     Dosage: UNK, 2 TIMES WEEKLY
     Route: 065
     Dates: start: 20230106, end: 20230107

REACTIONS (2)
  - Dysgeusia [Recovering/Resolving]
  - Tinnitus [Not Recovered/Not Resolved]

NARRATIVE: CASE EVENT DATE: 20230107
